FAERS Safety Report 5714232-3 (Version None)
Quarter: 2008Q2

REPORT INFORMATION
  Report Type: 
  Country: None (occurrence: None)
  Receive Date: 20080423
  Receipt Date: 20071030
  Transmission Date: 20081010
  Serious: No
  Sender: FDA-Public Use
  Company Number: US-KINGPHARMUSA00001-K200701403

PATIENT

DRUGS (4)
  1. SKELAXIN [Suspect]
     Indication: MUSCLE INJURY
     Dosage: 800 MG, TID
     Route: 048
     Dates: start: 20071027
  2. NORVASC [Concomitant]
     Indication: HYPERTENSION
  3. FOSAMAX [Concomitant]
     Indication: OSTEOPOROSIS
  4. CELEBREX [Concomitant]
     Dosage: UNK, BID
     Dates: start: 20071027

REACTIONS (1)
  - HEADACHE [None]
